FAERS Safety Report 17992495 (Version 1)
Quarter: 2020Q3

REPORT INFORMATION
  Report Type: Spontaneous
  Country: GB (occurrence: GB)
  Receive Date: 20200707
  Receipt Date: 20200707
  Transmission Date: 20201103
  Serious: Yes (Other)
  Sender: FDA-Public Use
  Company Number: NVSC2020GB185647

PATIENT
  Age: 53 Year
  Sex: Male

DRUGS (2)
  1. COTRIMOXAZOLE [Suspect]
     Active Substance: SULFAMETHOXAZOLE\TRIMETHOPRIM
     Indication: CHOLECYSTITIS ACUTE
     Dosage: 1920 MG, QD
     Route: 048
     Dates: start: 20200513
  2. METRONIDAZOLE. [Suspect]
     Active Substance: METRONIDAZOLE
     Indication: CHOLECYSTITIS ACUTE
     Dosage: 1200 MG, QD
     Route: 048
     Dates: start: 20200513

REACTIONS (7)
  - Tinnitus [Unknown]
  - Withdrawal syndrome [Unknown]
  - Skin discolouration [Unknown]
  - Hypoaesthesia [Unknown]
  - Anxiety [Unknown]
  - Paraesthesia [Unknown]
  - Diarrhoea [Unknown]

NARRATIVE: CASE EVENT DATE: 20200513
